FAERS Safety Report 9123122 (Version 2)
Quarter: 2013Q1

REPORT INFORMATION
  Report Type: Spontaneous
  Country: US (occurrence: None)
  Receive Date: 20130131
  Receipt Date: 20130312
  Transmission Date: 20140127
  Serious: Yes (Hospitalization)
  Sender: FDA-Public Use
  Company Number: 1576466

PATIENT
  Sex: Female

DRUGS (1)
  1. MARCAINE (BUPIVACAINE HCL INJECTION, USP 0.25%) (BUPIVACAINE HYDROCHLORIDE) [Suspect]
     Indication: NERVE BLOCK
     Dosage: 5 CC ON EACH LEG, UNKNOWN, UNKNOWN

REACTIONS (1)
  - Cellulitis [None]
